FAERS Safety Report 22163945 (Version 1)
Quarter: 2023Q2

REPORT INFORMATION
  Report Type: Spontaneous
  Country: US (occurrence: US)
  Receive Date: 20230402
  Receipt Date: 20230402
  Transmission Date: 20230722
  Serious: No
  Sender: FDA-Public Use
  Company Number: US-drreddys-SPO/USA/23/0161734

PATIENT
  Age: 20 Year
  Sex: Female

DRUGS (1)
  1. ZENATANE [Suspect]
     Active Substance: ISOTRETINOIN
     Indication: Product used for unknown indication
     Dosage: RMA ISSUE DATE: 08 NOVEMBER 2022 04:19:27 PM, 12 DECEMBER 2022 05:20:59 PM

REACTIONS (1)
  - Sensitive skin [Unknown]
